FAERS Safety Report 6212569-5 (Version None)
Quarter: 2009Q2

REPORT INFORMATION
  Report Type: 
  Country: None (occurrence: None)
  Receive Date: 20090603
  Receipt Date: 20090526
  Transmission Date: 20091009
  Serious: Yes (Other)
  Sender: FDA-Public Use
  Company Number: PHHY2009CA20892

PATIENT

DRUGS (2)
  1. DIOVAN T30230++HY [Suspect]
  2. CALCIUM CHANNEL BLOCKERS [Concomitant]

REACTIONS (1)
  - SINUS TACHYCARDIA [None]
